FAERS Safety Report 9547668 (Version 1)
Quarter: 2013Q3

REPORT INFORMATION
  Report Type: Spontaneous
  Country: FR (occurrence: None)
  Receive Date: 20130920
  Receipt Date: 20130920
  Transmission Date: 20140515
  Serious: Yes (Hospitalization)
  Sender: FDA-Public Use
  Company Number: DSM-2013-00746

PATIENT
  Age: 70 Year
  Sex: Female

DRUGS (1)
  1. ALTEIS DUO [Suspect]
     Indication: HYPERTENSION
     Route: 048
     Dates: start: 20130126, end: 20130806

REACTIONS (4)
  - Abdominal pain upper [None]
  - Gastrointestinal disorder [None]
  - Gastrointestinal motility disorder [None]
  - Diarrhoea [None]
